FAERS Safety Report 25778919 (Version 1)
Quarter: 2025Q3

REPORT INFORMATION
  Report Type: Spontaneous
  Country: CN (occurrence: CN)
  Receive Date: 20250909
  Receipt Date: 20250909
  Transmission Date: 20251020
  Serious: Yes (Other)
  Sender: PFIZER
  Company Number: CN-PFIZER INC-PV202500107283

PATIENT
  Age: 74 Year
  Sex: Male
  Weight: 59 kg

DRUGS (7)
  1. FLUCONAZOLE [Interacting]
     Active Substance: FLUCONAZOLE
     Indication: Meningitis cryptococcal
     Dosage: 0.6 G, 1X/DAY (DAYS 90-120)
     Route: 048
  2. FLUCONAZOLE [Interacting]
     Active Substance: FLUCONAZOLE
     Indication: Meningitis cryptococcal
     Dosage: 400 MG, DAILY (DAYS 6 TO 19) DOUBLE THE FIRST DAY
     Route: 041
  3. FLUCONAZOLE [Interacting]
     Active Substance: FLUCONAZOLE
     Dosage: 600 MG, DAILY (DAYS 20 TO 49)
     Route: 041
  4. AMPHOTERICIN B DEOXYCHOLATE [Interacting]
     Active Substance: AMPHOTERICIN B DEOXYCHOLATE
     Indication: Meningitis cryptococcal
     Route: 041
  5. FLUCYTOSINE [Suspect]
     Active Substance: FLUCYTOSINE
     Indication: Meningitis cryptococcal
     Dosage: 1.5 G, 4X/DAY (DAYS 20 TO 120)
     Route: 048
  6. CEFTRIAXONE [Concomitant]
     Active Substance: CEFTRIAXONE
     Indication: COVID-19
     Dosage: 2 G, 1X/DAY (DAYS 1-6)
     Route: 041
  7. MOLNUPIRAVIR [Concomitant]
     Active Substance: MOLNUPIRAVIR
     Indication: COVID-19
     Dosage: 0.8 G, 1X/DAY (DAYS 1-5)
     Route: 048

REACTIONS (2)
  - Drug interaction [Unknown]
  - Drug ineffective [Unknown]
